FAERS Safety Report 4361323-8 (Version None)
Quarter: 2004Q2

REPORT INFORMATION
  Report Type: 
  Country: None (occurrence: None)
  Receive Date: 20040520
  Receipt Date: 20040212
  Transmission Date: 20050107
  Serious: No
  Sender: FDA-Public Use
  Company Number: US-MERCK-0402USA00967

PATIENT
  Age: 34 Year
  Sex: Male
  Weight: 77 kg

DRUGS (4)
  1. DARVOCET-N 100 [Concomitant]
     Indication: PAIN
     Route: 048
  2. CEFTRIAXONE SODIUM [Concomitant]
     Route: 065
  3. INVANZ [Suspect]
     Indication: MENINGITIS
     Route: 042
     Dates: start: 20040111, end: 20040119
  4. SEPTRA [Concomitant]
     Indication: OTITIS MEDIA
     Route: 048
     Dates: start: 20040119, end: 20040310

REACTIONS (1)
  - DEEP VEIN THROMBOSIS [None]
